FAERS Safety Report 19469239 (Version 2)
Quarter: 2021Q3

REPORT INFORMATION
  Report Type: Spontaneous
  Country: SI (occurrence: SI)
  Receive Date: 20210628
  Receipt Date: 20210709
  Transmission Date: 20211014
  Serious: Yes (Death, Hospitalization, Other)
  Sender: FDA-Public Use
  Company Number: SI-ASTRAZENECA-2021A555253

PATIENT
  Age: 38 Year
  Sex: Female

DRUGS (13)
  1. METHOTREXATE. [Suspect]
     Active Substance: METHOTREXATE
     Indication: BREAST CANCER
     Dosage: UNK
     Route: 065
     Dates: start: 19970110
  2. FLUOROURACIL. [Suspect]
     Active Substance: FLUOROURACIL
     Indication: METASTASES TO LYMPH NODES
     Dosage: UNK
     Route: 065
     Dates: start: 19970110
  3. FEMARA [Suspect]
     Active Substance: LETROZOLE
     Indication: LIVER INJURY
     Dosage: 2.5 MG, QD
     Route: 065
     Dates: start: 20100529, end: 20161027
  4. FEMARA [Suspect]
     Active Substance: LETROZOLE
     Indication: PULMONARY MASS
     Dosage: 2.5 MG, QD
     Route: 065
     Dates: start: 20100529, end: 20161027
  5. METHOTREXATE. [Suspect]
     Active Substance: METHOTREXATE
     Indication: METASTASES TO LYMPH NODES
     Dosage: UNK
     Route: 065
     Dates: start: 19970110
  6. FLUOROURACIL. [Suspect]
     Active Substance: FLUOROURACIL
     Indication: BREAST CANCER
     Dosage: UNK
     Route: 065
     Dates: start: 19970110
  7. FEMARA [Suspect]
     Active Substance: LETROZOLE
     Indication: LIVER INJURY
     Dosage: UNK
     Dates: start: 20100715
  8. CYCLOPHOSPHAMIDE. [Concomitant]
     Active Substance: CYCLOPHOSPHAMIDE
     Indication: METASTASES TO LYMPH NODES
     Dosage: UNK
  9. FEMARA [Suspect]
     Active Substance: LETROZOLE
     Indication: BREAST CANCER
     Dosage: 2.5 MG, QD
     Route: 065
     Dates: start: 20100529, end: 20161027
  10. FEMARA [Suspect]
     Active Substance: LETROZOLE
     Indication: PULMONARY MASS
     Dosage: UNK
     Dates: start: 20100715
  11. FULVESTRANT. [Suspect]
     Active Substance: FULVESTRANT
     Indication: BREAST CANCER
     Dosage: 500 MG (S.C)
     Route: 058
     Dates: start: 20190729
  12. PACLITAXEL. [Concomitant]
     Active Substance: PACLITAXEL
     Indication: PRODUCT USED FOR UNKNOWN INDICATION
     Dosage: 90MG/ M2
  13. FEMARA [Suspect]
     Active Substance: LETROZOLE
     Indication: BREAST CANCER
     Dosage: UNK
     Dates: start: 20100715

REACTIONS (36)
  - Metastases to lung [Not Recovered/Not Resolved]
  - Febrile neutropenia [Recovered/Resolved]
  - Respiratory tract infection [Recovered/Resolved]
  - Ascites [Not Recovered/Not Resolved]
  - Depression [Unknown]
  - Malignant peritoneal neoplasm [Not Recovered/Not Resolved]
  - Adenocarcinoma [Unknown]
  - Metastases to bone [Not Recovered/Not Resolved]
  - Lymphoedema [Not Recovered/Not Resolved]
  - Hot flush [Unknown]
  - Fatigue [Recovering/Resolving]
  - Malignant neoplasm progression [Not Recovered/Not Resolved]
  - Asthenia [Recovering/Resolving]
  - Breast cancer [Fatal]
  - Metastases to lymph nodes [Fatal]
  - Liver disorder [Unknown]
  - Hypercalcaemia [Unknown]
  - Dysgeusia [Recovering/Resolving]
  - Second primary malignancy [Unknown]
  - Cough [Unknown]
  - Spinal pain [Unknown]
  - Fibrosis [Unknown]
  - Abdominal distension [Unknown]
  - Insomnia [Unknown]
  - Decreased appetite [Recovering/Resolving]
  - Peritonitis bacterial [Unknown]
  - Pulmonary mass [Unknown]
  - Musculoskeletal chest pain [Recovered/Resolved]
  - Neutropenia [Recovered/Resolved]
  - Abdominal pain [Unknown]
  - Weight decreased [Recovering/Resolving]
  - General physical health deterioration [Unknown]
  - Pleural effusion [Not Recovered/Not Resolved]
  - Metastases to liver [Not Recovered/Not Resolved]
  - Body temperature increased [Unknown]
  - Nasopharyngitis [Unknown]

NARRATIVE: CASE EVENT DATE: 19970116
